FAERS Safety Report 8415478-6 (Version None)
Quarter: 2012Q2

REPORT INFORMATION
  Report Type: 
  Country: None (occurrence: None)
  Receive Date: 20120606
  Receipt Date: 20120605
  Transmission Date: 20120825
  Serious: Yes (Death)
  Sender: FDA-Public Use
  Company Number: PHHY2011HN86134

PATIENT
  Age: 92 Year
  Sex: Male

DRUGS (4)
  1. KETOCONAZOLE [Concomitant]
     Indication: PROSTATE CANCER
     Dosage: 3 DF, PER DAY
     Route: 048
  2. CASODEX [Concomitant]
     Dosage: 1 DF, PER DAY
     Route: 048
  3. DIOVAN [Suspect]
     Dosage: 320 MG PER DAY
     Route: 048
     Dates: end: 20100101
  4. TRUSOPT [Concomitant]

REACTIONS (1)
  - RESPIRATORY ARREST [None]
